FAERS Safety Report 8162008-2 (Version None)
Quarter: 2012Q1

REPORT INFORMATION
  Report Type: 
  Country: None (occurrence: None)
  Receive Date: 20120224
  Receipt Date: 20111207
  Transmission Date: 20120608
  Serious: No
  Sender: FDA-Public Use
  Company Number: US-BRISTOL-MYERS SQUIBB COMPANY-16251282

PATIENT
  Age: 41 Year
  Sex: Female
  Weight: 77 kg

DRUGS (2)
  1. GLUCOPHAGE [Suspect]
     Indication: POLYCYSTIC OVARIES
     Dosage: 26NOV11 1 TAB/D DOSE REDUCED TO HALF TAB
     Dates: start: 20030101
  2. ALDACTONE [Concomitant]

REACTIONS (12)
  - ABDOMINAL PAIN UPPER [None]
  - COELIAC DISEASE [None]
  - DIARRHOEA [None]
  - HEART RATE INCREASED [None]
  - HEADACHE [None]
  - BLOOD PRESSURE INCREASED [None]
  - DRUG INTOLERANCE [None]
  - ABDOMINAL DISTENSION [None]
  - MIGRAINE [None]
  - ABDOMINAL PAIN [None]
  - DYSPEPSIA [None]
  - URINE OUTPUT INCREASED [None]
